FAERS Safety Report 6774994-3 (Version None)
Quarter: 2010Q2

REPORT INFORMATION
  Report Type: 
  Country: None (occurrence: None)
  Receive Date: 20100617
  Receipt Date: 20100614
  Transmission Date: 20101027
  Serious: Yes (Other)
  Sender: FDA-Public Use
  Company Number: A0857087A

PATIENT
  Age: 55 Year
  Sex: Female
  Weight: 71.8 kg

DRUGS (4)
  1. AVANDARYL [Suspect]
     Dosage: 1TAB PER DAY
     Route: 048
     Dates: start: 20091201, end: 20100408
  2. CLONAZEPAM [Concomitant]
     Dosage: 1MG UNKNOWN
  3. CYMBALTA [Concomitant]
  4. ALBUTEROL [Concomitant]

REACTIONS (4)
  - BLOOD GLUCOSE DECREASED [None]
  - CONFUSIONAL STATE [None]
  - FATIGUE [None]
  - TREMOR [None]
